FAERS Safety Report 8624988-8 (Version None)
Quarter: 2012Q3

REPORT INFORMATION
  Report Type: 
  Country: None (occurrence: None)
  Receive Date: 20120827
  Receipt Date: 20120817
  Transmission Date: 20120928
  Serious: Yes (Hospitalization)
  Sender: FDA-Public Use
  Company Number: PHHY2012GB071388

PATIENT
  Age: 49 Year
  Sex: Male
  Weight: 63 kg

DRUGS (11)
  1. METHADONE HCL [Concomitant]
     Indication: DEPENDENCE
     Dosage: 90 ML, QD
  2. FLUTICASONE PROPIONATE/SALMETEROL [Concomitant]
     Indication: CHRONIC OBSTRUCTIVE PULMONARY DISEASE
     Dosage: 500 DF, BID
  3. TIOTROPIUM [Concomitant]
     Indication: CHRONIC OBSTRUCTIVE PULMONARY DISEASE
     Dosage: 18 UG, QD
  4. ACETAMINOPHEN [Concomitant]
     Indication: PAIN
     Dosage: 1 G, UNK
  5. ALBUTEROL SULATE [Concomitant]
     Indication: CHRONIC OBSTRUCTIVE PULMONARY DISEASE
     Dosage: 2 DF, UNK
  6. MIRTAZAPINE [Concomitant]
     Indication: DEPRESSION
     Dosage: 15 MG, QD
  7. PEGINTERFERON ALFA-2B [Concomitant]
     Indication: HEPATITIS C
     Dosage: 80 UG, QD
     Route: 058
     Dates: start: 20120115, end: 20120509
  8. IBUPROFEN [Suspect]
     Indication: PAIN
     Dosage: 300 MG, TID
     Route: 048
     Dates: end: 20120508
  9. TELAPREVIR [Suspect]
     Indication: HEPATITIS C
     Dosage: 750 MG, TID
     Route: 048
     Dates: start: 20120226, end: 20120509
  10. ARANESP [Concomitant]
     Indication: ANAEMIA
     Dosage: 80 UG, QW
     Route: 058
     Dates: start: 20120329, end: 20120509
  11. RIBAVIRIN [Concomitant]
     Indication: HEPATITIS C
     Dosage: 600 MG, PER DAY
     Dates: start: 20120115, end: 20120509

REACTIONS (8)
  - FLANK PAIN [None]
  - URINARY TRACT INFECTION [None]
  - ANAEMIA [None]
  - ESCHERICHIA TEST POSITIVE [None]
  - RENAL IMPAIRMENT [None]
  - POLLAKIURIA [None]
  - LOWER RESPIRATORY TRACT INFECTION [None]
  - DYSURIA [None]
